FAERS Safety Report 15900804 (Version 2)
Quarter: 2019Q2

REPORT INFORMATION
  Report Type: Spontaneous
  Country: DE (occurrence: DE)
  Receive Date: 20190201
  Receipt Date: 20190423
  Transmission Date: 20190711
  Serious: Yes (Hospitalization)
  Sender: FDA-Public Use
  Company Number: DE-ASTRAZENECA-2019SE17005

PATIENT
  Sex: Female

DRUGS (7)
  1. FORXIGA [Suspect]
     Active Substance: DAPAGLIFLOZIN
     Dosage: ONE TABLET OF FORXIGA EVERY TWO DAYS (10 MG UNKNOWN)
     Route: 048
     Dates: start: 201810
  2. INSUMAN RAPID [Concomitant]
     Active Substance: INSULIN HUMAN
  3. VITAMINS NOS [Concomitant]
     Active Substance: VITAMINS
  4. IODINE. [Concomitant]
     Active Substance: IODINE
     Indication: THYROID DISORDER
     Dosage: 200.0MG UNKNOWN
  5. TORASEMIDE [Concomitant]
     Active Substance: TORSEMIDE
     Dosage: 10.0MG UNKNOWN
  6. BLOPRESS [Concomitant]
     Active Substance: CANDESARTAN CILEXETIL
  7. VERAPAMIL [Concomitant]
     Active Substance: VERAPAMIL HYDROCHLORIDE

REACTIONS (23)
  - Pharyngeal haemorrhage [Unknown]
  - Haemorrhage [Unknown]
  - Vaginal haemorrhage [Unknown]
  - Erythema [Unknown]
  - Tachycardia [Unknown]
  - Fatigue [Unknown]
  - Pollakiuria [Unknown]
  - Vaginal infection [Unknown]
  - Epistaxis [Unknown]
  - Decreased appetite [Unknown]
  - Inflammation [Unknown]
  - Sleep disorder [Unknown]
  - Fungal infection [Unknown]
  - Vulvovaginal pruritus [Unknown]
  - Breast discomfort [Unknown]
  - Urinary tract infection [Unknown]
  - Product dose omission [Unknown]
  - Breast pain [Unknown]
  - Mastitis [Recovering/Resolving]
  - Back pain [Unknown]
  - Skin fissures [Unknown]
  - Pelvic pain [Unknown]
  - Infection [Unknown]
